FAERS Safety Report 11264730 (Version 2)
Quarter: 2015Q3

REPORT INFORMATION
  Report Type: Spontaneous
  Country: IL (occurrence: IL)
  Receive Date: 20150713
  Receipt Date: 20150721
  Transmission Date: 20151125
  Serious: Yes (Death)
  Sender: FDA-Public Use
  Company Number: IL-UNITED THERAPEUTICS-UNT-2015-008129

PATIENT
  Age: 72 Year
  Sex: Male

DRUGS (1)
  1. REMODULIN [Suspect]
     Active Substance: TREPROSTINIL
     Indication: PULMONARY ARTERIAL HYPERTENSION
     Dosage: 0.040 ?G/KG, CONTINUING
     Route: 058
     Dates: start: 2014

REACTIONS (1)
  - Death [Fatal]

NARRATIVE: CASE EVENT DATE: 20150704
